FAERS Safety Report 7072545-X (Version None)
Quarter: 2010Q4

REPORT INFORMATION
  Report Type: 
  Country: None (occurrence: None)
  Receive Date: 20101028
  Receipt Date: 20101028
  Transmission Date: 20110411
  Serious: Yes (Hospitalization)
  Sender: FDA-Public Use
  Company Number: None

PATIENT
  Age: 42 Year
  Sex: Male
  Weight: 99.8 kg

DRUGS (1)
  1. IOHEXOL [Suspect]
     Dosage: IV
     Route: 042

REACTIONS (7)
  - ACIDOSIS [None]
  - BLOOD ELECTROLYTES ABNORMAL [None]
  - COAGULOPATHY [None]
  - HAEMOGLOBIN DECREASED [None]
  - RENAL FAILURE ACUTE [None]
  - RESPIRATORY FAILURE [None]
  - WHITE BLOOD CELL COUNT INCREASED [None]
